FAERS Safety Report 7275536-9 (Version None)
Quarter: 2011Q1

REPORT INFORMATION
  Report Type: 
  Country: None (occurrence: None)
  Receive Date: 20110204
  Receipt Date: 20110131
  Transmission Date: 20110831
  Serious: Yes (Hospitalization)
  Sender: FDA-Public Use
  Company Number: US-ROCHE-757058

PATIENT
  Sex: Male

DRUGS (2)
  1. RIBAVIRIN [Suspect]
     Indication: HEPATITIS C
     Dosage: TAKEN IN DIVIDED DOSES
     Route: 065
     Dates: start: 20110110
  2. PEGASYS [Suspect]
     Indication: HEPATITIS C
     Dosage: PRE-FILLED SYRINGE
     Route: 065
     Dates: start: 20110110

REACTIONS (6)
  - WEIGHT INCREASED [None]
  - DYSPNOEA [None]
  - OEDEMA PERIPHERAL [None]
  - DRUG DOSE OMISSION [None]
  - FLUID OVERLOAD [None]
  - NO ADVERSE EVENT [None]
